FAERS Safety Report 6370068-4 (Version None)
Quarter: 2009Q3

REPORT INFORMATION
  Report Type: 
  Country: None (occurrence: None)
  Receive Date: 20090923
  Receipt Date: 20071016
  Transmission Date: 20100115
  Serious: No
  Sender: FDA-Public Use
  Company Number: US-ASTRAZENECA-2006UW20964

PATIENT
  Age: 64 Year
  Sex: Female
  Weight: 90.7 kg

DRUGS (51)
  1. SEROQUEL [Suspect]
     Indication: NERVOUSNESS
     Route: 048
     Dates: start: 20040101
  2. SEROQUEL [Suspect]
     Indication: SLEEP DISORDER
     Route: 048
     Dates: start: 20040101
  3. SEROQUEL [Suspect]
     Route: 048
     Dates: start: 20050310
  4. SEROQUEL [Suspect]
     Route: 048
     Dates: start: 20050310
  5. OMNIPAQUE 140 [Concomitant]
  6. DARVOCET [Concomitant]
  7. FENTANYL TRANSDERMAL SYSTEM [Concomitant]
  8. DIPRIVAN [Concomitant]
  9. MIDAZOLAM HCL [Concomitant]
  10. LIDOCAINE [Concomitant]
  11. TOPROL-XL [Concomitant]
  12. AMBIEN [Concomitant]
  13. AMARYL [Concomitant]
  14. ASTELIN [Concomitant]
  15. PREVACID [Concomitant]
  16. KEFLEX [Concomitant]
  17. CLARINEX [Concomitant]
  18. NASACORT [Concomitant]
  19. LORAZEPAM [Concomitant]
  20. CLONAZEPAM [Concomitant]
  21. CLOPRES [Concomitant]
  22. XANAX [Concomitant]
  23. LIPITOR [Concomitant]
  24. ASPIRIN [Concomitant]
  25. GLIMEPIRIDE [Concomitant]
  26. ALPRAZOLAM [Concomitant]
  27. MIRALAX [Concomitant]
  28. KLOR-CON [Concomitant]
  29. DIFLUCAN [Concomitant]
  30. CATAPRES [Concomitant]
  31. ORPHENADRINE CITRATE [Concomitant]
  32. LEXAPRO [Concomitant]
  33. DIAZEPAM [Concomitant]
  34. AMOXIL [Concomitant]
  35. OXYBUTYNIN CHLORIDE [Concomitant]
  36. AMOXICILLIN + CLAVULANATE POTASSIUM [Concomitant]
  37. FLUCONAZOLE [Concomitant]
  38. HYDROXYZINE [Concomitant]
  39. EDECRIN [Concomitant]
  40. DICYCLOMINE [Concomitant]
  41. GABAPENTIN [Concomitant]
  42. PROPRANOLOL [Concomitant]
  43. ECONAZOLE NITRATE [Concomitant]
  44. TRIAMCINOLONE [Concomitant]
  45. OLUX [Concomitant]
  46. GUANFACINE HYDROCHLORIDE [Concomitant]
  47. SPIRONOLACTONE [Concomitant]
  48. NAPROXEN [Concomitant]
  49. DOXYCYCLINE [Concomitant]
  50. FELODIPINE [Concomitant]
  51. AVELOX [Concomitant]

REACTIONS (21)
  - CHRONIC SINUSITIS [None]
  - CONSTIPATION [None]
  - DEAFNESS NEUROSENSORY [None]
  - DIABETES MELLITUS [None]
  - DIVERTICULUM [None]
  - DYSGEUSIA [None]
  - EAR PAIN [None]
  - FAECAL INCONTINENCE [None]
  - GOITRE [None]
  - HAEMANGIOMA OF SKIN [None]
  - HAEMATOCHEZIA [None]
  - HEADACHE [None]
  - HYPOACUSIS [None]
  - NECK PAIN [None]
  - PAROSMIA [None]
  - POLYP [None]
  - PRURITUS [None]
  - RHINITIS [None]
  - RHINITIS ALLERGIC [None]
  - THYROID NEOPLASM [None]
  - TINNITUS [None]
